FAERS Safety Report 15733297 (Version 6)
Quarter: 2020Q3

REPORT INFORMATION
  Report Type: Spontaneous
  Country: JP (occurrence: JP)
  Receive Date: 20181218
  Receipt Date: 20200706
  Transmission Date: 20201102
  Serious: Yes (Other)
  Sender: FDA-Public Use
  Company Number: JP-BRISTOL-MYERS SQUIBB COMPANY-BMS-2018-118701

PATIENT
  Age: 55 Year
  Sex: Male
  Weight: 56.4 kg

DRUGS (2)
  1. OPDIVO [Suspect]
     Active Substance: NIVOLUMAB
     Dosage: 240 MG, UNK
     Route: 041
     Dates: start: 20181012
  2. OPDIVO [Suspect]
     Active Substance: NIVOLUMAB
     Indication: PLEURAL MESOTHELIOMA MALIGNANT
     Dosage: 240 MG, UNK
     Route: 041
     Dates: start: 20180831, end: 20180914

REACTIONS (5)
  - Pericardial effusion [Unknown]
  - Pleurisy [Unknown]
  - Pleural effusion [Recovered/Resolved]
  - Ascites [Recovered/Resolved]
  - Intentional product use issue [Unknown]

NARRATIVE: CASE EVENT DATE: 20180904
